FAERS Safety Report 18524655 (Version 1)
Quarter: 2020Q4

REPORT INFORMATION
  Report Type: Report from Study
  Country: DE (occurrence: JP)
  Receive Date: 20201119
  Receipt Date: 20201119
  Transmission Date: 20210114
  Serious: Yes (Other)
  Sender: FDA-Public Use
  Company Number: JP-ELI_LILLY_AND_COMPANY-BMS-2016-004007

PATIENT
  Age: 62 Year
  Sex: Female

DRUGS (2)
  1. CETUXIMAB. [Suspect]
     Active Substance: CETUXIMAB
     Indication: SQUAMOUS CELL CARCINOMA OF HEAD AND NECK
     Dosage: UNK UNK, UNKNOWN
     Route: 041
     Dates: start: 20140416, end: 20140430
  2. MINOMYCIN [Concomitant]
     Active Substance: MINOCYCLINE HYDROCHLORIDE
     Indication: PROPHYLAXIS

REACTIONS (7)
  - Dermatitis acneiform [Recovered/Resolved]
  - Paronychia [Recovered/Resolved]
  - Interstitial lung disease [Recovered/Resolved]
  - Radiation skin injury [Recovered/Resolved]
  - Pharyngeal inflammation [Recovered/Resolved]
  - Dry mouth [Not Recovered/Not Resolved]
  - Stomatitis [Recovered/Resolved]

NARRATIVE: CASE EVENT DATE: 20140501
